FAERS Safety Report 7534512-9 (Version None)
Quarter: 2011Q2

REPORT INFORMATION
  Report Type: 
  Country: None (occurrence: None)
  Receive Date: 20110609
  Receipt Date: 20090605
  Transmission Date: 20111010
  Serious: Yes (Death)
  Sender: FDA-Public Use
  Company Number: PHHY2009CN20036

PATIENT
  Sex: Male

DRUGS (1)
  1. ZOLEDRONIC ACID [Suspect]
     Indication: METASTASES TO BONE
     Dosage: 4 MG, QD
     Route: 042
     Dates: start: 20090520

REACTIONS (4)
  - UNRESPONSIVE TO STIMULI [None]
  - SUDDEN CARDIAC DEATH [None]
  - LOSS OF CONSCIOUSNESS [None]
  - BLOOD PRESSURE IMMEASURABLE [None]
